FAERS Safety Report 25741161 (Version 1)
Quarter: 2025Q3

REPORT INFORMATION
  Report Type: Spontaneous
  Country: US (occurrence: US)
  Receive Date: 20250829
  Receipt Date: 20250829
  Transmission Date: 20251021
  Serious: No
  Sender: MERCK SHARP & DOHME LLC
  Company Number: US-009507513-2324278

PATIENT
  Age: 63 Year
  Sex: Male

DRUGS (7)
  1. LETERMOVIR [Suspect]
     Active Substance: LETERMOVIR
     Indication: Infection prophylaxis
     Dosage: INTENDED DURATION: 3 MONTHS
  2. TACROLIMUS [Concomitant]
     Active Substance: TACROLIMUS
     Indication: Immunosuppressant drug therapy
  3. MYCOPHENOLATE MOFETIL [Concomitant]
     Active Substance: MYCOPHENOLATE MOFETIL
     Indication: Immunosuppressant drug therapy
  4. PREDNISONE [Concomitant]
     Active Substance: PREDNISONE
     Indication: Immunosuppressant drug therapy
  5. FAMCICLOVIR [Concomitant]
     Active Substance: FAMCICLOVIR
     Indication: Infection prophylaxis
     Dosage: INTENDED DURATION: 3 MONTHS
  6. trimethoprim-sulfamethoxazole (TMP/SMX) [Concomitant]
     Indication: Infection prophylaxis
     Dosage: INTENDED DURATION: 6 MONTHS
  7. NYSTATIN [Concomitant]
     Active Substance: NYSTATIN
     Indication: Infection prophylaxis
     Dosage: SWISH AND SWALLOW; INTENDED DURATION: 12 MONTHS

REACTIONS (1)
  - Product use in unapproved indication [Unknown]
